FAERS Safety Report 17916293 (Version 1)
Quarter: 2020Q2

REPORT INFORMATION
  Report Type: Spontaneous
  Country: IT (occurrence: IT)
  Receive Date: 20200619
  Receipt Date: 20200619
  Transmission Date: 20200714
  Serious: Yes (Other)
  Sender: FDA-Public Use
  Company Number: IT-ACCORD-185782

PATIENT
  Age: 45 Year
  Sex: Female
  Weight: 58 kg

DRUGS (9)
  1. ONDANSETRON ACCORD HEALTHCARE [Concomitant]
     Active Substance: ONDANSETRON
     Indication: PROPHYLAXIS OF NAUSEA AND VOMITING
     Route: 042
     Dates: start: 20200521, end: 20200521
  2. PACLITAXEL ACCORD HEALTHCARE ITALIA [Suspect]
     Active Substance: PACLITAXEL
     Indication: BREAST CANCER
     Route: 042
     Dates: start: 20200521, end: 20200521
  3. TRIMETON [Concomitant]
     Active Substance: CHLORPHENIRAMINE MALEATE
     Indication: ANAPHYLAXIS PROPHYLAXIS
     Route: 042
     Dates: start: 20200604, end: 20200604
  4. ONDANSETRON ACCORD HEALTHCARE [Concomitant]
     Active Substance: ONDANSETRON
     Indication: PROPHYLAXIS OF NAUSEA AND VOMITING
     Route: 042
     Dates: start: 20200604, end: 20200604
  5. DEXAMETHASONE PHOSPHATE PFIZER [Concomitant]
     Active Substance: DEXAMETHASONE PHOSPHATE
     Indication: ANAPHYLAXIS PROPHYLAXIS
     Route: 042
     Dates: start: 20200604, end: 20200604
  6. PACLITAXEL ACCORD HEALTHCARE ITALIA [Suspect]
     Active Substance: PACLITAXEL
     Indication: BREAST CANCER
     Route: 042
     Dates: start: 20200604, end: 20200604
  7. DEXAMETHASONE PHOSPHATE PFIZER [Concomitant]
     Active Substance: DEXAMETHASONE PHOSPHATE
     Indication: ANAPHYLAXIS PROPHYLAXIS
     Route: 042
     Dates: start: 20200521, end: 20200521
  8. TRIMETON [Concomitant]
     Active Substance: CHLORPHENIRAMINE MALEATE
     Indication: ANAPHYLAXIS PROPHYLAXIS
     Route: 042
     Dates: start: 20200521, end: 20200521
  9. ANTRA [Concomitant]
     Active Substance: OMEPRAZOLE
     Route: 042
     Dates: start: 20200521, end: 20200521

REACTIONS (4)
  - Chest discomfort [Recovered/Resolved]
  - Infusion related reaction [Recovered/Resolved]
  - Blood pressure increased [Recovered/Resolved]
  - Erythema [Recovered/Resolved]

NARRATIVE: CASE EVENT DATE: 20200604
